FAERS Safety Report 21325537 (Version 2)
Quarter: 2022Q3

REPORT INFORMATION
  Report Type: Report from Study
  Country: FR (occurrence: FR)
  Receive Date: 20220912
  Receipt Date: 20220920
  Transmission Date: 20221027
  Serious: No
  Sender: FDA-Public Use
  Company Number: FR-TAKEDA-2022TUS062929

PATIENT
  Age: 61 Year
  Sex: Male

DRUGS (6)
  1. TEDUGLUTIDE [Suspect]
     Active Substance: TEDUGLUTIDE
     Indication: Short-bowel syndrome
     Dosage: 2 MILLIGRAM, 1/WEEK
     Route: 042
     Dates: start: 20180719
  2. TEDUGLUTIDE [Suspect]
     Active Substance: TEDUGLUTIDE
     Indication: Short-bowel syndrome
     Dosage: 2 MILLIGRAM, 1/WEEK
     Route: 042
     Dates: start: 20180719
  3. TEDUGLUTIDE [Suspect]
     Active Substance: TEDUGLUTIDE
     Indication: Short-bowel syndrome
     Dosage: 2 MILLIGRAM, 1/WEEK
     Route: 042
     Dates: start: 20180719
  4. TEDUGLUTIDE [Suspect]
     Active Substance: TEDUGLUTIDE
     Indication: Short-bowel syndrome
     Dosage: 2 MILLIGRAM, 1/WEEK
     Route: 042
     Dates: start: 20180719
  5. ESOMEPRAZOLE [Concomitant]
     Active Substance: ESOMEPRAZOLE
     Indication: Duodenal polyp
     Dosage: 20 MILLIGRAM, QD
     Route: 048
     Dates: start: 20220301, end: 20220329
  6. ESOMEPRAZOLE [Concomitant]
     Active Substance: ESOMEPRAZOLE
     Indication: Postoperative care
     Dosage: 40 MILLIGRAM, QD
     Route: 048
     Dates: start: 20220225, end: 20220228

REACTIONS (1)
  - Duodenal polyp [Recovered/Resolved]

NARRATIVE: CASE EVENT DATE: 20210922
